FAERS Safety Report 9901218 (Version 2)
Quarter: 2014Q1

REPORT INFORMATION
  Report Type: Spontaneous
  Country: US (occurrence: US)
  Receive Date: 20140217
  Receipt Date: 20140217
  Transmission Date: 20141002
  Serious: Yes (Other)
  Sender: FDA-Public Use
  Company Number: US-ELI_LILLY_AND_COMPANY-US201310009445

PATIENT
  Sex: Female
  Weight: 102.95 kg

DRUGS (6)
  1. HUMALOG LISPRO [Suspect]
     Indication: TYPE 2 DIABETES MELLITUS
     Dosage: 15 U, TID
     Route: 058
     Dates: start: 201304, end: 20131202
  2. VICTOZA [Concomitant]
     Dosage: 1.2 MG, UNKNOWN
  3. ZOLPIDEM [Concomitant]
  4. LOSARTAN/HCT [Concomitant]
  5. GABAPENTIN [Concomitant]
  6. REQUIP [Concomitant]
     Dosage: 4 MG, UNKNOWN

REACTIONS (3)
  - Hyperglycaemia [Recovered/Resolved]
  - Hypoglycaemia [Recovered/Resolved]
  - Incorrect dosage administered [Recovered/Resolved]
